FAERS Safety Report 7121689-2 (Version None)
Quarter: 2010Q4

REPORT INFORMATION
  Report Type: 
  Country: None (occurrence: None)
  Receive Date: 20101124
  Receipt Date: 20101119
  Transmission Date: 20110411
  Serious: Yes (Death)
  Sender: FDA-Public Use
  Company Number: DE-GENZYME-CLOF-1001324

PATIENT
  Age: 68 Year
  Sex: Male

DRUGS (1)
  1. EVOLTRA [Suspect]
     Indication: ACUTE MYELOID LEUKAEMIA
     Dosage: UNK
     Route: 042

REACTIONS (1)
  - DEATH [None]
